FAERS Safety Report 23692393 (Version 1)
Quarter: 2024Q2

REPORT INFORMATION
  Report Type: Report from Study
  Country: US (occurrence: US)
  Receive Date: 20240401
  Receipt Date: 20240401
  Transmission Date: 20240716
  Serious: Yes (Hospitalization)
  Sender: FDA-Public Use
  Company Number: US-PFIZER INC-PV202400035049

PATIENT
  Age: 46 Year
  Sex: Female

DRUGS (3)
  1. BRAFTOVI [Suspect]
     Active Substance: ENCORAFENIB
     Indication: Malignant melanoma
     Dosage: 6 CAPSULES
     Dates: start: 202402, end: 202402
  2. BRAFTOVI [Suspect]
     Active Substance: ENCORAFENIB
     Dosage: 300MG (4 CAPS) BRAFTOVI QD (ONCE A DAY)
     Dates: start: 20240302
  3. MEKTOVI [Suspect]
     Active Substance: BINIMETINIB
     Indication: Malignant melanoma
     Dosage: 30MG (2 CAPS) MEKTOVI BID (TWICE A DAY)

REACTIONS (5)
  - Migraine [Unknown]
  - Pyrexia [Unknown]
  - Hepatic enzyme increased [Unknown]
  - Neoplasm progression [Not Recovered/Not Resolved]
  - Headache [Unknown]

NARRATIVE: CASE EVENT DATE: 20240101
